FAERS Safety Report 18545759 (Version 2)
Quarter: 2020Q4

REPORT INFORMATION
  Report Type: Spontaneous
  Country: US (occurrence: US)
  Receive Date: 20201125
  Receipt Date: 20201217
  Transmission Date: 20210114
  Serious: No
  Sender: FDA-Public Use
  Company Number: US-ASTRAZENECA-2020SF43389

PATIENT
  Age: 25356 Day
  Sex: Female
  Weight: 106.6 kg

DRUGS (2)
  1. BYDUREON BCISE [Suspect]
     Active Substance: EXENATIDE
     Indication: DIABETES MELLITUS
     Route: 058
     Dates: start: 2019
  2. INSULIN [Concomitant]
     Active Substance: INSULIN NOS
     Indication: DIABETES MELLITUS

REACTIONS (5)
  - Memory impairment [Unknown]
  - Intentional device misuse [Unknown]
  - Device malfunction [Unknown]
  - Wrong technique in device usage process [Unknown]
  - Device ineffective [Unknown]

NARRATIVE: CASE EVENT DATE: 20201024
